FAERS Safety Report 9370503 (Version 2)
Quarter: 2013Q3

REPORT INFORMATION
  Report Type: Spontaneous
  Country: US (occurrence: US)
  Receive Date: 20130626
  Receipt Date: 20130903
  Transmission Date: 20140515
  Serious: Yes (Other)
  Sender: FDA-Public Use
  Company Number: US-GLAXOSMITHKLINE-A1028459A

PATIENT
  Age: 70 Year
  Sex: Female

DRUGS (13)
  1. LAMICTAL [Suspect]
     Indication: BIPOLAR DISORDER
     Dosage: 200MG PER DAY
     Route: 048
     Dates: start: 2011, end: 201305
  2. MELOXICAM [Concomitant]
  3. LEVOTHYROXINE [Concomitant]
  4. AMLODIPINE [Concomitant]
  5. ZOLOFT [Concomitant]
  6. ALPRAZOLAM [Concomitant]
  7. METOPROLOL [Concomitant]
  8. PRAVASTATIN [Concomitant]
  9. HUMIRA [Concomitant]
  10. WELLBUTRIN SR [Concomitant]
  11. MULTIVITAMIN [Concomitant]
  12. ACID REFLUX MED. [Concomitant]
  13. CALCIUM + VIT D [Concomitant]

REACTIONS (7)
  - Pulmonary fibrosis [Unknown]
  - Pain [Recovered/Resolved]
  - Coordination abnormal [Recovering/Resolving]
  - Tremor [Recovering/Resolving]
  - Balance disorder [Recovering/Resolving]
  - Neuropathy peripheral [Unknown]
  - Aortic aneurysm [Not Recovered/Not Resolved]
